FAERS Safety Report 10742237 (Version 1)
Quarter: 2015Q1

REPORT INFORMATION
  Report Type: Spontaneous
  Country: SG (occurrence: SG)
  Receive Date: 20150127
  Receipt Date: 20150127
  Transmission Date: 20150721
  Serious: Yes (Hospitalization, Other)
  Sender: FDA-Public Use
  Company Number: SG-009507513-1501SGP006471

PATIENT
  Age: 32 Year
  Sex: Female

DRUGS (3)
  1. LEUPROLIDE [Suspect]
     Active Substance: LEUPROLIDE
     Indication: OVULATION INDUCTION
     Dosage: 1 MG, QD
     Route: 058
  2. CETRORELIX [Suspect]
     Active Substance: CETRORELIX
     Dosage: INITIATED ON DAY 7 OF OVARIAN STIMULATION UNTIL THE TRIGGER DAY
  3. FOLLITROPIN BETA [Suspect]
     Active Substance: FOLLITROPIN
     Indication: OVULATION INDUCTION
     Dosage: STRENGTH 125 INTERNATIONAL UNITS-{1000,DOSE GRADUALLY STEPPED UP TO 150 IU OVER 12 DAYS

REACTIONS (3)
  - Dyspnoea [Recovered/Resolved]
  - Abdominal distension [Recovered/Resolved]
  - Ovarian hyperstimulation syndrome [Recovered/Resolved]

NARRATIVE: CASE EVENT DATE: 20130104
